FAERS Safety Report 21831508 (Version 3)
Quarter: 2023Q1

REPORT INFORMATION
  Report Type: Spontaneous
  Country: US (occurrence: US)
  Receive Date: 20230106
  Receipt Date: 20230113
  Transmission Date: 20230418
  Serious: Yes (Hospitalization, Other)
  Sender: FDA-Public Use
  Company Number: US-BIOVITRUM-2023US00276

PATIENT
  Age: 0 Year
  Sex: Male
  Weight: 6 kg

DRUGS (10)
  1. SYNAGIS [Suspect]
     Active Substance: PALIVIZUMAB
     Indication: Antiviral prophylaxis
     Dates: start: 202211
  2. SYNAGIS [Suspect]
     Active Substance: PALIVIZUMAB
     Indication: Pulmonary hypertension
  3. FUROSEMIDE [Concomitant]
     Active Substance: FUROSEMIDE
     Dosage: 10MG/ML SOLUTION
  4. OMEPRAZOLE [Concomitant]
     Active Substance: OMEPRAZOLE
     Dosage: CAPSULE DR
  5. TRACLEER [Concomitant]
     Active Substance: BOSENTAN
     Dosage: TAB SUSP
  6. TRACLEER [Concomitant]
     Active Substance: BOSENTAN
     Dosage: INCREASED
  7. REMODULIN [Concomitant]
     Active Substance: TREPROSTINIL
     Dosage: 10 MG/ML VIAL
  8. SILDENAFIL CITRATE [Concomitant]
     Active Substance: SILDENAFIL CITRATE
  9. OXYGEN [Concomitant]
     Active Substance: OXYGEN
  10. INFANTS GAS RELIEF [Concomitant]
     Active Substance: DIMETHICONE

REACTIONS (3)
  - Pneumonia [Not Recovered/Not Resolved]
  - COVID-19 [Not Recovered/Not Resolved]
  - Nasopharyngitis [Not Recovered/Not Resolved]

NARRATIVE: CASE EVENT DATE: 20230105
